FAERS Safety Report 4551963-5 (Version None)
Quarter: 2005Q1

REPORT INFORMATION
  Report Type: 
  Country: None (occurrence: None)
  Receive Date: 20050112
  Receipt Date: 20041001
  Transmission Date: 20050727
  Serious: Yes (Disabling)
  Sender: FDA-Public Use
  Company Number: A02200403065

PATIENT
  Age: 77 Year
  Sex: Male

DRUGS (10)
  1. PLAVIX [Suspect]
     Indication: CORONARY ARTERY DISEASE
     Dosage: 75 MG OD ORAL
     Route: 048
     Dates: start: 20030613, end: 20040907
  2. KARDEGIC - (ACETYLSALICYLATE LYSINE) - POWDER [Suspect]
     Indication: CORONARY ARTERY DISEASE
     Dosage: ORAL
     Route: 048
     Dates: start: 20040201, end: 20040907
  3. VISUDYNE [Concomitant]
  4. RAMIPRIL [Concomitant]
  5. DIAFUSOR (GLYCERYL TRINITRATE) [Concomitant]
  6. TENORMIN [Concomitant]
  7. IKOREL (NICORANDIL) [Concomitant]
  8. VASTAREL (TRIMETAZIDINE HYDROCHLORIDE) [Concomitant]
  9. ZOCOR [Concomitant]
  10. JOSIR (TAMSULOSIN HYDROCHLORIDE) [Concomitant]

REACTIONS (4)
  - CONDITION AGGRAVATED [None]
  - HAEMORRHAGIC DISORDER [None]
  - MACULAR DEGENERATION [None]
  - VISUAL ACUITY REDUCED [None]
